FAERS Safety Report 8221659 (Version 3)
Quarter: 2013Q3

REPORT INFORMATION
  Report Type: Spontaneous
  Country: US (occurrence: US)
  Receive Date: 20111102
  Receipt Date: 20130904
  Transmission Date: 20140515
  Serious: No
  Sender: FDA-Public Use
  Company Number: US-ASTRAZENECA-2011SE53518

PATIENT
  Age: 41 Year
  Sex: Female

DRUGS (7)
  1. CAPRELSA [Suspect]
     Indication: MEDULLARY THYROID CANCER
     Route: 048
  2. LEVOTHYROXINE SODIUM [Concomitant]
  3. DEXILANT [Concomitant]
  4. HYDROCODONE/ACETAMINOPHEN [Concomitant]
  5. MOTRIN [Concomitant]
  6. MOTRIN IB [Concomitant]
  7. MECLIZINE HCL [Concomitant]

REACTIONS (7)
  - Vulvovaginal dryness [Not Recovered/Not Resolved]
  - Local swelling [Not Recovered/Not Resolved]
  - Weight increased [Not Recovered/Not Resolved]
  - Productive cough [Not Recovered/Not Resolved]
  - Dry skin [Not Recovered/Not Resolved]
  - Diarrhoea [Not Recovered/Not Resolved]
  - Rash [Unknown]
